FAERS Safety Report 5112983-5 (Version None)
Quarter: 2006Q3

REPORT INFORMATION
  Report Type: 
  Country: None (occurrence: None)
  Receive Date: 20060921
  Receipt Date: 20060921
  Transmission Date: 20061208
  Serious: No
  Sender: FDA-Public Use
  Company Number: None

PATIENT
  Sex: Male
  Weight: 88.4514 kg

DRUGS (3)
  1. GABAPENTIN [Suspect]
     Indication: NEUROPATHY
     Dosage: 300  QHS PO
     Route: 048
     Dates: start: 20060710, end: 20060823
  2. ENBREL [Concomitant]
  3. HYDROCOCONE 5/ACETAMINOPHEN [Concomitant]

REACTIONS (1)
  - MOOD SWINGS [None]
